FAERS Safety Report 22536949 (Version 1)
Quarter: 2023Q2

REPORT INFORMATION
  Report Type: Spontaneous
  Country: US (occurrence: None)
  Receive Date: 20230608
  Receipt Date: 20230608
  Transmission Date: 20230721
  Serious: Yes (Other)
  Sender: FDA-Public Use
  Company Number: 2023A127283

PATIENT
  Age: 29388 Day
  Sex: Male
  Weight: 95.3 kg

DRUGS (1)
  1. BYDUREON BCISE [Suspect]
     Active Substance: EXENATIDE
     Route: 058

REACTIONS (5)
  - Renal failure [Recovered/Resolved]
  - Gallbladder disorder [Recovered/Resolved]
  - Nephrolithiasis [Recovered/Resolved with Sequelae]
  - Device delivery system issue [Unknown]
  - Device leakage [Unknown]

NARRATIVE: CASE EVENT DATE: 20230531
